FAERS Safety Report 6407533-7 (Version None)
Quarter: 2009Q4

REPORT INFORMATION
  Report Type: 
  Country: None (occurrence: None)
  Receive Date: 20091020
  Receipt Date: 20091012
  Transmission Date: 20100525
  Serious: Yes (Other)
  Sender: FDA-Public Use
  Company Number: DE-TEVA-209411ISR

PATIENT
  Sex: Female
  Weight: 12.4 kg

DRUGS (1)
  1. METHOTREXATE [Suspect]
     Route: 042
     Dates: start: 20090526, end: 20090529

REACTIONS (2)
  - DRUG CLEARANCE INCREASED [None]
  - DRUG LEVEL INCREASED [None]
